FAERS Safety Report 7502241-3 (Version None)
Quarter: 2011Q1

REPORT INFORMATION
  Report Type: 
  Country: None (occurrence: None)
  Receive Date: 20110318
  Receipt Date: 20100405
  Transmission Date: 20110831
  Serious: Yes (Other)
  Sender: FDA-Public Use
  Company Number: 2010SP019824

PATIENT
  Age: 47 Year
  Sex: Male

DRUGS (4)
  1. MICARDIS [Concomitant]
  2. CELEXA [Concomitant]
  3. PEG-INTRON [Suspect]
     Indication: PRODUCT USED FOR UNKNOWN INDICATION
     Dosage: 150 MCG;QW;SC
     Route: 058
     Dates: start: 20091019
  4. RIBAVIRIN [Suspect]
     Indication: PRODUCT USED FOR UNKNOWN INDICATION
     Dosage: 1200 MG;QD;PO
     Route: 048
     Dates: start: 20091019

REACTIONS (1)
  - RENAL IMPAIRMENT [None]
